FAERS Safety Report 22400048 (Version 1)
Quarter: 2023Q2

REPORT INFORMATION
  Report Type: Spontaneous
  Country: NL (occurrence: NL)
  Receive Date: 20230602
  Receipt Date: 20230602
  Transmission Date: 20230721
  Serious: Yes (Life-Threatening, Hospitalization, Disabling, Other)
  Sender: FDA-Public Use
  Company Number: None

PATIENT
  Sex: Female
  Weight: 79 kg

DRUGS (60)
  1. CEFUROXIME [Suspect]
     Active Substance: CEFUROXIME
     Indication: Product used for unknown indication
     Dosage: UNKNOWN, / BRAND NAME NOT SPECIFIED
     Route: 065
  2. AZITHROMYCIN [Suspect]
     Active Substance: AZITHROMYCIN
     Indication: Infection
     Dosage: 1 DOSAGE FORMS DAILY;
     Route: 065
     Dates: start: 20221210, end: 20221212
  3. CIPROFLOXACIN [Suspect]
     Active Substance: CIPROFLOXACIN
     Indication: Infection
     Dosage: UP TO 3 DD 600MG I.V, INFVLST 2MG/ML / BRAND NAME NOT SPECIFIED
     Route: 042
     Dates: start: 20221115, end: 20221116
  4. METRONIDAZOLE [Suspect]
     Active Substance: METRONIDAZOLE
     Indication: Product used for unknown indication
     Dosage: UNKNOWN. START AND STOP DATE ALSO UNKNOWN, / BRAND NAME NOT SPECIFIED
     Route: 065
  5. CEFOTAXIME [Suspect]
     Active Substance: CEFOTAXIME SODIUM
     Indication: Infection
     Dosage: 6000 MILLIGRAM DAILY; UP TO 6000MG/DAY I.V. CONTINUOUS
     Route: 042
     Dates: start: 20221115, end: 20221122
  6. ACETAMINOPHEN [Suspect]
     Active Substance: ACETAMINOPHEN
     Indication: Pain
     Dosage: / BRAND NAME NOT SPECIFIED
     Route: 065
     Dates: start: 20221115, end: 20221129
  7. PIPERACILLIN AND TAZOBACTAM [Suspect]
     Active Substance: PIPERACILLIN SODIUM\TAZOBACTAM SODIUM
     Indication: Infection
     Dosage: 1 DOSAGE FORMS DAILY;  INFVLST 80/10MG/ML / BRAND NAME NOT SPECIFIED, 1X DAILY, IN VARYING DOSES
     Route: 065
     Dates: start: 20221122, end: 20221213
  8. CEFTRIAXONE [Suspect]
     Active Substance: CEFTRIAXONE
     Indication: Infection
     Dosage: UNKNOWN,   / BRAND NAME NOT SPECIFIED
     Route: 065
  9. ACYCLOVIR [Suspect]
     Active Substance: ACYCLOVIR
     Indication: Product used for unknown indication
     Dosage: UP TO 3DD 10MG/KG,  / BRAND NAME NOT SPECIFIED
     Route: 065
     Dates: start: 20221121, end: 20221123
  10. COLISTIN [Suspect]
     Active Substance: COLISTIN
     Indication: Infection
     Dosage: UP TO 8DD 10ML,  BASIS FOR SDD SUSPENSION COLISTIN/TOBRAMYCIN / BRAND NAME NOT SPECIFIED
     Route: 065
     Dates: start: 20221115, end: 20221213
  11. CLINDAMYCIN [Suspect]
     Active Substance: CLINDAMYCIN
     Indication: Product used for unknown indication
     Dosage: UNKNOWN,   BRAND NAME NOT SPECIFIED
     Route: 065
  12. VANCOMYCIN [Suspect]
     Active Substance: VANCOMYCIN
     Indication: Infection
     Dosage: BRAND NAME NOT SPECIFIED, UP TO 1700MG/DAY I.V. ONE-TIME,
     Route: 042
     Dates: start: 20221204, end: 20221204
  13. VANCOMYCIN [Suspect]
     Active Substance: VANCOMYCIN
     Dosage: UP TO 1700MG/DAY I.V. ONE-TIME, UNIT DOSE : 1 DOSAGE FORM , FREQUENCY TIME : 1 DAY
     Route: 042
     Dates: start: 20221121, end: 20221122
  14. METAMIZOLE SODIUM [Suspect]
     Active Substance: METAMIZOLE SODIUM
     Indication: Pain
     Dosage: UNKNOWN,  / BRAND NAME NOT SPECIFIED
     Route: 065
  15. AMBISOME [Suspect]
     Active Substance: AMPHOTERICIN B
     Indication: Infection
     Dosage: AMPHOTTERICIN B INFUSION POWDER 50MG (LIPOSOMAL) / AMBISOME INFUSION POWDER VIAL 50MG, 25MG TWICE A
     Route: 065
     Dates: start: 20221207, end: 20221213
  16. MOXIFLOXACIN [Suspect]
     Active Substance: MOXIFLOXACIN
     Indication: Infection
     Dosage: 400 MILLIGRAM DAILY; 400MG/DAY IV,   BRAND NAME NOT SPECIFIED
     Route: 042
     Dates: start: 20221116, end: 20221118
  17. PANTOPRAZOLE SODIUM [Suspect]
     Active Substance: PANTOPRAZOLE SODIUM
     Indication: Product used for unknown indication
     Dosage: 40 MILLIGRAM DAILY; 1DD 40MG I.V,  / BRAND NAME NOT SPECIFIED
     Route: 042
     Dates: start: 20221117, end: 20221212
  18. ENOXIMON [Concomitant]
     Indication: Product used for unknown indication
     Dosage: UNKNOWN, / BRAND NAME NOT SPECIFIED
     Route: 065
  19. MILRINONE LACTATE [Concomitant]
     Active Substance: MILRINONE LACTATE
     Indication: Product used for unknown indication
     Dosage: UNKNOWN,  / BRAND NAME NOT SPECIFIED
     Route: 065
  20. TEMAZEPAM [Concomitant]
     Active Substance: TEMAZEPAM
     Indication: Product used for unknown indication
     Dosage: UNKNOWN,  / BRAND NAME NOT SPECIFIED
     Route: 065
  21. CALCIUM CHLORIDE\MAGNESIUM CHLORIDE\POTASSIUM CHLORIDE\SODIUM BICARBON [Concomitant]
     Active Substance: CALCIUM CHLORIDE\MAGNESIUM CHLORIDE\POTASSIUM CHLORIDE\SODIUM BICARBONATE\SODIUM CHLORIDE\SODIUM PHO
     Indication: Product used for unknown indication
     Dosage: UNKNOWN, PHOXILIUM 1,2MMOL/L FOSFAAT HEMOFILT/DIALOPL / BRAND NAME NOT SPECIFIED
     Route: 065
  22. MORFINE HYDROCHLORIDE [Concomitant]
     Indication: Product used for unknown indication
     Dosage: UNKNOWN, / BRAND NAME NOT SPECIFIED
     Route: 065
  23. DEXMEDETOMIDINE [Concomitant]
     Active Substance: DEXMEDETOMIDINE
     Indication: Product used for unknown indication
     Dosage: UNKNOWN, / BRAND NAME NOT SPECIFIED
     Route: 065
  24. TRANEXAMINEZUUR [Concomitant]
     Indication: Product used for unknown indication
     Dosage: UNKNOWN,  / BRAND NAME NOT SPECIFIED
     Route: 065
  25. METHYLNALTREXON [Concomitant]
     Indication: Product used for unknown indication
     Dosage: UNKNOWN,  / BRAND NAME NOT SPECIFIED
     Route: 065
  26. MAGNESIUMSULFAAT [Concomitant]
     Indication: Product used for unknown indication
     Dosage: UNKNOWN, MAGNESIUMSULFAAT 7-WATER / BRAND NAME NOT SPECIFIED
     Route: 065
  27. CALCIUMACETAAT/MAGNESIUMSUBCARBONAAT [Concomitant]
     Indication: Product used for unknown indication
     Dosage: UNKNOWN,  STRENGTH : 435/235MG / BRAND NAME NOT SPECIFIED
     Route: 065
  28. CARBAMAZEPINE [Concomitant]
     Active Substance: CARBAMAZEPINE
     Indication: Product used for unknown indication
     Dosage: UNKNOWN,  / BRAND NAME NOT SPECIFIED
     Route: 065
  29. PREDNISONE [Concomitant]
     Active Substance: PREDNISONE
     Indication: Product used for unknown indication
     Dosage: UNKNOWN,   / BRAND NAME NOT SPECIFIED
     Route: 065
  30. IOMEPROL [Concomitant]
     Active Substance: IOMEPROL
     Indication: Product used for unknown indication
     Dosage: UNKNOWN, INJVLST 350MGI/ML / BRAND NAME NOT SPECIFIED
     Route: 065
  31. POTASSIUM CHLORIDE [Concomitant]
     Active Substance: POTASSIUM CHLORIDE
     Indication: Product used for unknown indication
     Dosage: UNKNOWN, / BRAND NAME NOT SPECIFIED
     Route: 065
  32. EPINEPHRINE [Concomitant]
     Active Substance: EPINEPHRINE
     Indication: Product used for unknown indication
     Dosage: UNKNOWN,  BRAND NAME NOT SPECIFIED
     Route: 065
  33. ATROPINE SULFATE [Concomitant]
     Active Substance: ATROPINE SULFATE
     Indication: Product used for unknown indication
     Dosage: UNKNOWN,   / BRAND NAME NOT SPECIFIED
     Route: 065
  34. PIRITRAMIDE [Concomitant]
     Active Substance: PIRITRAMIDE
     Indication: Product used for unknown indication
     Dosage: UNKNOWN, PIRITRAMIDE INJVLST 10MG/ML / BRAND NAME NOT SPECIFIED
     Route: 065
  35. ARGIPRESSINE [Concomitant]
     Indication: Product used for unknown indication
     Dosage: UNKNOWN,  ARGIPRESSINE  INFOPL CONC 20IE/ML / BRAND NAME NOT SPECIFIED
     Route: 065
  36. OXAZEPAM [Concomitant]
     Active Substance: OXAZEPAM
     Indication: Product used for unknown indication
     Dosage: UNKNOWN, / /BRAND NAME NOT SPECIFIED
     Route: 065
  37. DALTEPARINE [Concomitant]
     Indication: Product used for unknown indication
     Dosage: UNKNOWN,  / BRAND NAME NOT SPECIFIED
     Route: 065
  38. POLYETHYLENE GLYCOLS [Concomitant]
     Active Substance: POLYETHYLENE GLYCOLS
     Indication: Product used for unknown indication
     Dosage: UNKNOWN, MACROGOL/SALT DRINK / BRAND NAME NOT SPECIFIED
     Route: 065
  39. LORAZEPAM [Concomitant]
     Active Substance: LORAZEPAM
     Indication: Product used for unknown indication
     Dosage: UNKNOWN, ,  / BRAND NAME NOT SPECIFIED
     Route: 065
  40. HYDROCORTISONE [Concomitant]
     Active Substance: HYDROCORTISONE
     Indication: Product used for unknown indication
     Dosage: UNKNOWN,  / BRAND NAME NOT SPECIFIED
     Route: 065
  41. ALBUMIN HUMAN [Concomitant]
     Active Substance: ALBUMIN HUMAN
     Indication: Product used for unknown indication
     Dosage: UNKNOWN,  / BRAND NAME NOT SPECIFIED
     Route: 065
  42. FUROSEMIDE [Concomitant]
     Active Substance: FUROSEMIDE
     Indication: Product used for unknown indication
     Dosage: UNKNOWN,  / BRAND NAME NOT SPECIFIED
     Route: 065
  43. MIDAZOLAM HYDROCHLORIDE [Concomitant]
     Active Substance: MIDAZOLAM HYDROCHLORIDE
     Indication: Product used for unknown indication
     Dosage: UNKNOWN, / BRAND NAME NOT SPECIFIED
     Route: 065
  44. ALBUTEROL\IPRATROPIUM [Concomitant]
     Active Substance: ALBUTEROL\IPRATROPIUM
     Indication: Product used for unknown indication
     Dosage: UNKNOWN, SALBUTAMOL/IPRATROPIUM NEVELVELST 1/0.1MG/ML / BRAND NAME NOT SPECIFIED
     Route: 065
  45. NACL/NATRIUMCITRAAT [Concomitant]
     Indication: Product used for unknown indication
     Dosage: UNKNOWN, NACL/SODIUM CITRATE HEMOFILTR OPL 5.03/5.29MG/ML / REGIOCIT HEMOFILT/DIALYSEOPL BAG 5000ML
     Route: 065
  46. SUFENTANIL CITRAAT [Concomitant]
     Indication: Product used for unknown indication
     Dosage: UNKNOWN, / BRAND NAME NOT SPECIFIED
     Route: 065
  47. PROPOFOL [Concomitant]
     Active Substance: PROPOFOL
     Indication: Product used for unknown indication
     Dosage: UNKNOWN, / BRAND NAME NOT SPECIFIED
     Route: 065
  48. ROCURONIUM [Concomitant]
     Active Substance: ROCURONIUM BROMIDE
     Indication: Product used for unknown indication
     Dosage: UNKNOWN, / BRAND NAME NOT SPECIFIED
     Route: 065
  49. NADROPARIN CALCIUM [Concomitant]
     Active Substance: NADROPARIN CALCIUM
     Indication: Product used for unknown indication
     Dosage: UNKNOWN, NADROPARIN INJVLST 9500IE/ML / FRAXIPARIN INJVLST 2850IE/0.3ML (9500IE/ML) WWSP
     Route: 065
  50. HEPARIN [Concomitant]
     Active Substance: HEPARIN SODIUM
     Indication: Product used for unknown indication
     Dosage: UNKNOWN,  HEPARIN INFVLST 1IE/ML IN RINGER LACTATE / BRAND NAME NOT SPECIFIED
     Route: 065
  51. VITAMIN K [Concomitant]
     Active Substance: PHYTONADIONE
     Indication: Product used for unknown indication
     Dosage: NUTRISON PROTEIN PLUS. UNKNOWN DOSE, POWDER FOR FOODS WITH I.A. VITAMIN K / NUTRISONE POWDER
     Route: 065
  52. NOREPINEPHRINE [Concomitant]
     Active Substance: NOREPINEPHRINE
     Indication: Product used for unknown indication
     Dosage: UNKNOWN,  / BRAND NAME NOT SPECIFIED
     Route: 065
  53. HALOPERIDOL [Concomitant]
     Active Substance: HALOPERIDOL
     Indication: Product used for unknown indication
     Dosage: UNKNOWN,  / BRAND NAME NOT SPECIFIED
     Route: 065
  54. CALCIUMCARB/COLECAL [Concomitant]
     Indication: Product used for unknown indication
     Dosage: UNKNOWN, CALCIUM CARB/COLECAL EFFERVESCENT GR 1,25G/440IE (500MG CA) / CAD ORANGE EFFERVESCENT GRANU
     Route: 065
  55. BIPHOZYL HEMOFILTRATIE [Concomitant]
     Indication: Product used for unknown indication
     Dosage: UNKNOWN,  BIPHOZYL HEMOFILTRATION / DIALYSIS SOLUTION / BRAND NAME NOT SPECIFIED
     Route: 065
  56. ALENDRONIC ACID [Concomitant]
     Active Substance: ALENDRONIC ACID
     Indication: Product used for unknown indication
     Dosage: UNKNOWN,/ BRAND NAME NOT SPECIFIED
  57. QUETIAPINE FUMARAAT [Concomitant]
     Indication: Product used for unknown indication
     Dosage: UNKNOWN,  / BRAND NAME NOT SPECIFIED
     Route: 065
  58. FENTANYL [Concomitant]
     Active Substance: FENTANYL
     Indication: Product used for unknown indication
     Dosage: UNKNOWN, , / BRAND NAME NOT SPECIFIED
     Route: 065
  59. DOBUTAMINE [Concomitant]
     Active Substance: DOBUTAMINE HYDROCHLORIDE
     Indication: Product used for unknown indication
     Dosage: UNKNOWN,/ BRAND NAME NOT SPECIFIED,
     Route: 065
  60. TOBRAMYCIN [Suspect]
     Active Substance: TOBRAMYCIN

REACTIONS (1)
  - Toxic epidermal necrolysis [Recovering/Resolving]
